FAERS Safety Report 8592829-3 (Version None)
Quarter: 2012Q3

REPORT INFORMATION
  Report Type: 
  Country: None (occurrence: None)
  Receive Date: 20120814
  Receipt Date: 20120731
  Transmission Date: 20120928
  Serious: Yes (Death, Life-Threatening, Other)
  Sender: FDA-Public Use
  Company Number: JP-ROCHE-1077481

PATIENT
  Sex: Male
  Weight: 68 kg

DRUGS (18)
  1. AVASTIN [Suspect]
     Dosage: EIGHT TIMES
     Route: 041
     Dates: start: 20111114, end: 20120409
  2. OXALIPLATIN [Concomitant]
     Indication: RECTAL CANCER RECURRENT
     Dosage: 17 TIMES
     Route: 041
     Dates: start: 20090817, end: 20100426
  3. FLUOROURACIL [Concomitant]
     Dosage: 17 TIMES
     Route: 041
     Dates: start: 20090817, end: 20100401
  4. FLUOROURACIL [Concomitant]
     Dosage: EIGHT TIMES
     Route: 041
     Dates: start: 20100510, end: 20100801
  5. IRINOTECAN HCL [Concomitant]
     Indication: RECTAL CANCER RECURRENT
     Dosage: 26 TIMES
     Route: 041
     Dates: start: 20100830, end: 20110912
  6. TS-1 [Concomitant]
     Indication: RECTAL CANCER RECURRENT
     Dosage: EIGHT TIMES
     Route: 048
     Dates: start: 20111114, end: 20120409
  7. AVASTIN [Suspect]
     Dosage: 26 TIMES
     Route: 041
     Dates: start: 20100830, end: 20110912
  8. AVASTIN [Suspect]
     Indication: RECTAL CANCER RECURRENT
     Dosage: NINE TIMES
     Route: 041
     Dates: start: 20090817
  9. LEVOLEUCOVORIN CALCIUM [Concomitant]
     Indication: RECTAL CANCER RECURRENT
     Dosage: 17 TIMES
     Route: 041
     Dates: start: 20090817, end: 20100426
  10. LEVOLEUCOVORIN CALCIUM [Concomitant]
     Dosage: 26 TIMES
     Route: 041
     Dates: start: 20100830, end: 20110912
  11. FLUOROURACIL [Concomitant]
     Dosage: 26 TIMES
     Route: 041
     Dates: start: 20100830, end: 20110901
  12. AVASTIN [Suspect]
     Dosage: EIGHT TIMES
     Route: 041
     Dates: end: 20100426
  13. AVASTIN [Suspect]
     Dosage: EIGHT TIMES
     Route: 041
     Dates: start: 20100510, end: 20100816
  14. FLUOROURACIL [Concomitant]
     Dosage: 26 TIMES
     Route: 040
     Dates: start: 20100830, end: 20110912
  15. FLUOROURACIL [Concomitant]
     Indication: RECTAL CANCER RECURRENT
     Dosage: 17 TIMES
     Route: 040
     Dates: start: 20090817, end: 20100426
  16. LEVOLEUCOVORIN CALCIUM [Concomitant]
     Dosage: EIGHT TIMES
     Route: 041
     Dates: start: 20100510, end: 20100816
  17. OXALIPLATIN [Concomitant]
     Dosage: EIGHT TIMES
     Route: 041
     Dates: start: 20111114, end: 20120409
  18. FLUOROURACIL [Concomitant]
     Dosage: EIGHT TIMES
     Route: 040
     Dates: start: 20100510, end: 20100816

REACTIONS (7)
  - DISSEMINATED INTRAVASCULAR COAGULATION [None]
  - DISEASE PROGRESSION [None]
  - INTESTINAL PERFORATION [None]
  - RENAL FAILURE ACUTE [None]
  - MALIGNANT PLEURAL EFFUSION [None]
  - SEPTIC SHOCK [None]
  - MALIGNANT ASCITES [None]
